FAERS Safety Report 8338445-X (Version None)
Quarter: 2012Q2

REPORT INFORMATION
  Report Type: 
  Country: None (occurrence: None)
  Receive Date: 20120504
  Receipt Date: 20120425
  Transmission Date: 20120825
  Serious: Yes (Hospitalization)
  Sender: FDA-Public Use
  Company Number: CA-ROCHE-1059822

PATIENT
  Sex: Female

DRUGS (7)
  1. XOLAIR [Suspect]
     Route: 058
     Dates: start: 20120326
  2. SYMBICORT [Concomitant]
  3. VENTOLIN [Concomitant]
  4. PREDNISONE TAB [Concomitant]
  5. SPIRIVA [Concomitant]
  6. THEO-DUR [Concomitant]
  7. XOLAIR [Suspect]
     Indication: ASTHMA
     Route: 058
     Dates: start: 20111116

REACTIONS (3)
  - PULMONARY FIBROSIS [None]
  - HEART RATE INCREASED [None]
  - FATIGUE [None]
